FAERS Safety Report 16871179 (Version 1)
Quarter: 2019Q3

REPORT INFORMATION
  Report Type: Report from Study
  Country: MX (occurrence: MX)
  Receive Date: 20190930
  Receipt Date: 20190930
  Transmission Date: 20191005
  Serious: Yes (Other)
  Sender: FDA-Public Use
  Company Number: MX-B.I. PHARMACEUTICALS,INC./RIDGEFIELD-2019-BI-103969

PATIENT

DRUGS (5)
  1. MYCOPHENOLIC ACID. [Concomitant]
     Active Substance: MYCOPHENOLIC ACID
     Indication: IMMUNOSUPPRESSION
     Route: 065
  2. INSULIN LISPRO [Concomitant]
     Active Substance: INSULIN LISPRO
     Indication: HYPERGLYCAEMIA
     Dosage: HALF AS INSULIN LISPRO DIVIDED INTO THREE EQUAL DOSES BEFORE MEALS
     Route: 065
  3. TRAYENTA [Suspect]
     Active Substance: LINAGLIPTIN
     Indication: HYPERGLYCAEMIA
     Route: 065
  4. INSULIN [Concomitant]
     Active Substance: INSULIN NOS
     Indication: HYPERGLYCAEMIA
     Dosage: BOLUS; STARTING DOSE OF 0.5 U/KG/DAY, GIVEN HALF AS BASAL INSULIN(NPH/GLARGINE)ONCE OR TWICE DAILY
     Route: 065
  5. METHYLPREDNISOLONE. [Concomitant]
     Active Substance: METHYLPREDNISOLONE
     Indication: IMMUNOSUPPRESSION
     Route: 065

REACTIONS (1)
  - Renal transplant failure [Unknown]
